FAERS Safety Report 9685001 (Version 2)
Quarter: 2013Q4

REPORT INFORMATION
  Report Type: Spontaneous
  Country: AR (occurrence: AR)
  Receive Date: 20131113
  Receipt Date: 20131216
  Transmission Date: 20140711
  Serious: Yes (Other)
  Sender: FDA-Public Use
  Company Number: AR-AMGEN-ARGSP2013079645

PATIENT
  Age: 62 Year
  Sex: Female

DRUGS (3)
  1. ENBREL [Suspect]
     Indication: PSORIATIC ARTHROPATHY
     Dosage: 50 MG, WEEKLY
     Route: 058
     Dates: start: 20110628
  2. ARTRAIT                            /00113801/ [Concomitant]
     Indication: PSORIATIC ARTHROPATHY
     Dosage: UNK
  3. ACIFOL                             /00024201/ [Concomitant]
     Dosage: UNK

REACTIONS (3)
  - Intervertebral disc protrusion [Not Recovered/Not Resolved]
  - Hepatic enzyme increased [Recovered/Resolved]
  - Psoriasis [Recovered/Resolved]
